FAERS Safety Report 17669359 (Version 1)
Quarter: 2020Q2

REPORT INFORMATION
  Report Type: Spontaneous
  Country: US (occurrence: US)
  Receive Date: 20200415
  Receipt Date: 20200415
  Transmission Date: 20200713
  Serious: Yes (Hospitalization, Other)
  Sender: FDA-Public Use
  Company Number: US-IBIGEN-2020.08614

PATIENT
  Age: 76 Year
  Sex: Female

DRUGS (3)
  1. AMPICILLIN [Suspect]
     Active Substance: AMPICILLIN
     Indication: ENDOCARDITIS ENTEROCOCCAL
     Dosage: OBTAINED FROM A DILUTION OF A 1000 MG/VIAL WITH STERILE WATER FOR INJECTION
  2. AMPICILLIN [Suspect]
     Active Substance: AMPICILLIN
     Indication: ENDOCARDITIS ENTEROCOCCAL
     Dosage: OBTAINED FROM A DILUTION OF A 1000 MG/VIAL WITH STERILE WATER FOR INJECTION
  3. AMPICILLIN [Suspect]
     Active Substance: AMPICILLIN
     Indication: ENDOCARDITIS ENTEROCOCCAL
     Dosage: OBTAINED FROM A DILUTION OF A 1000 MG/VIAL WITH STERILE WATER FOR INJECTION

REACTIONS (3)
  - Bronchospasm [Unknown]
  - Pruritus [Unknown]
  - Erythema [Unknown]
